FAERS Safety Report 6637254-7 (Version None)
Quarter: 2010Q1

REPORT INFORMATION
  Report Type: 
  Country: None (occurrence: None)
  Receive Date: 20100316
  Receipt Date: 20100302
  Transmission Date: 20100710
  Serious: No
  Sender: FDA-Public Use
  Company Number: US-ABBOTT-10P-163-0630257-00

PATIENT
  Sex: Male
  Weight: 113.5 kg

DRUGS (3)
  1. TRILIPIX [Suspect]
     Indication: ISCHAEMIC HEART DISEASE PROPHYLAXIS
     Route: 048
     Dates: start: 20100202
  2. LORTAB [Concomitant]
     Indication: DRUG USE FOR UNKNOWN INDICATION
     Dosage: 10-325MG
  3. XANAX [Concomitant]
     Indication: ANXIETY
     Route: 048

REACTIONS (1)
  - DIARRHOEA [None]
